FAERS Safety Report 9905390 (Version 1)
Quarter: 2014Q1

REPORT INFORMATION
  Report Type: Spontaneous
  Country: GB (occurrence: None)
  Receive Date: 20140211
  Receipt Date: 20140211
  Transmission Date: 20141002
  Serious: Yes (Other)
  Sender: FDA-Public Use
  Company Number: AUR-APL-2014-01333

PATIENT
  Age: 58 Year
  Sex: Female
  Weight: 82.55 kg

DRUGS (3)
  1. PAROXETINE (PAROXETINE) [Suspect]
     Indication: DEPRESSION
     Route: 048
     Dates: start: 20131015
  2. LEVOTHYROXINE SODIUM (LEVOTHYROXINE SODIUM) [Concomitant]
  3. SIMVASTATIN (SIMVASTATIN) [Concomitant]

REACTIONS (9)
  - Akathisia [None]
  - Anxiety [None]
  - Nausea [None]
  - Decreased appetite [None]
  - Diarrhoea [None]
  - Insomnia [None]
  - Weight decreased [None]
  - Fatigue [None]
  - Withdrawal syndrome [None]
